FAERS Safety Report 5694199-7 (Version None)
Quarter: 2008Q2

REPORT INFORMATION
  Report Type: 
  Country: None (occurrence: None)
  Receive Date: 20080402
  Receipt Date: 20080118
  Transmission Date: 20081010
  Serious: Yes (Hospitalization, Other)
  Sender: FDA-Public Use
  Company Number: 2008AL001889

PATIENT
  Age: 47 Year
  Sex: Female

DRUGS (5)
  1. FLUOXETINE [Suspect]
     Indication: DEPRESSION
     Dosage: 40 MG;QD
     Dates: start: 20050725, end: 20050915
  2. QUETIAPINE FUMARATE [Concomitant]
  3. PREDNISOLONE [Concomitant]
  4. AUGMENTIN '125' [Concomitant]
  5. TAZOCIN [Concomitant]

REACTIONS (2)
  - BRONCHOSTENOSIS [None]
  - PULMONARY EOSINOPHILIA [None]
